FAERS Safety Report 4928351-2 (Version None)
Quarter: 2006Q1

REPORT INFORMATION
  Report Type: 
  Country: None (occurrence: None)
  Receive Date: 20060223
  Receipt Date: 20060202
  Transmission Date: 20060701
  Serious: Yes (Hospitalization)
  Sender: FDA-Public Use
  Company Number: FR200511001245

PATIENT
  Age: 86 Year
  Sex: Female
  Weight: 61 kg

DRUGS (5)
  1. FORTEO [Suspect]
     Indication: OSTEOPOROSIS
     Dosage: 20 UG, DAILY (1/D), SUBCUTANEOUS
     Route: 058
     Dates: start: 20060101
  2. ATENOLOL [Concomitant]
  3. IRBESARTAN [Concomitant]
  4. OMEPRAZOLE [Concomitant]
  5. ACETAMINOPHEN [Concomitant]

REACTIONS (6)
  - BONE PAIN [None]
  - DRUG INEFFECTIVE [None]
  - NAUSEA [None]
  - PYELONEPHRITIS [None]
  - TENDONITIS [None]
  - URETERIC STENOSIS [None]
